FAERS Safety Report 18696852 (Version 1)
Quarter: 2021Q1

REPORT INFORMATION
  Report Type: Other
  Country: US (occurrence: US)
  Receive Date: 20210104
  Receipt Date: 20210104
  Transmission Date: 20210419
  Serious: No
  Sender: FDA-Public Use
  Company Number: US-ROCHE-2518874

PATIENT
  Age: 12 Year
  Sex: Female

DRUGS (3)
  1. BUDESONIDE;FORMOTEROL [Concomitant]
     Active Substance: BUDESONIDE\FORMOTEROL
     Dosage: INHALED
  2. ACETYLCYSTEINE. [Concomitant]
     Active Substance: ACETYLCYSTEINE
     Dosage: NEBULIZED
  3. ACTILYSE [Suspect]
     Active Substance: ALTEPLASE
     Indication: FIBRINOUS BRONCHITIS
     Dosage: NEBULIZED
     Route: 065

REACTIONS (3)
  - Epistaxis [Unknown]
  - Intentional product use issue [Unknown]
  - Off label use [Unknown]
